FAERS Safety Report 7467281-1 (Version None)
Quarter: 2011Q2

REPORT INFORMATION
  Report Type: 
  Country: None (occurrence: None)
  Receive Date: 20110509
  Receipt Date: 20101130
  Transmission Date: 20111010
  Serious: Yes (Hospitalization)
  Sender: FDA-Public Use
  Company Number: US-ALEXION-A201001365

PATIENT
  Sex: Female

DRUGS (17)
  1. PREDNISONE [Concomitant]
     Dosage: 7.5 MG, QD
     Dates: start: 20100901
  2. ASPIRIN [Concomitant]
     Dosage: 650 MG, BID
     Dates: end: 20100501
  3. INFLUENZA VACCINE [Suspect]
     Indication: IMMUNISATION
     Dosage: UNK
     Dates: start: 20101116, end: 20101116
  4. DANAZOL [Concomitant]
     Dosage: 100 MG, QD
     Route: 048
     Dates: end: 20071101
  5. IRON SULFATETHIAMIN COMPOUND TAB [Concomitant]
     Dosage: 1-2, QD
     Route: 048
  6. PREDNISONE [Concomitant]
     Indication: PAROXYSMAL NOCTURNAL HAEMOGLOBINURIA
     Dosage: 5 MG, QD
     Route: 048
  7. GLEEVEC [Suspect]
     Indication: MASTOCYTOSIS
     Dosage: 200 MG, BID
     Dates: start: 20101117
  8. COUMADIN [Concomitant]
     Indication: THROMBOSIS PROPHYLAXIS
     Dosage: 1 MG, QD
     Route: 048
  9. ASPIRIN [Concomitant]
     Indication: MASTOCYTOSIS
     Dosage: 975 MG, BID
     Route: 048
  10. SOLIRIS [Suspect]
     Dosage: 900 MG, Q2W
     Route: 042
     Dates: start: 20071001
  11. GLEEVEC [Suspect]
     Dosage: 200 MG, QD
     Dates: start: 20100901
  12. DANAZOL [Concomitant]
     Indication: PAROXYSMAL NOCTURNAL HAEMOGLOBINURIA
     Dosage: 50 MG, QD
     Route: 048
  13. DANAZOL [Concomitant]
     Dosage: ALTERNATING 50 MG + 100 MG
     Dates: start: 20080625
  14. DANAZOL [Concomitant]
     Dosage: 50 MG, QD
     Route: 048
     Dates: start: 20080123
  15. FOLATE [Concomitant]
     Dosage: 1 MG, QD
     Route: 048
  16. SOLIRIS [Suspect]
     Indication: PAROXYSMAL NOCTURNAL HAEMOGLOBINURIA
     Dosage: UNK
     Route: 042
     Dates: start: 20070904
  17. GLEEVEC [Suspect]
     Dosage: 100 MG, BID
     Dates: start: 20101001

REACTIONS (6)
  - NEUTROPHIL COUNT DECREASED [None]
  - ERYTHEMA INFECTIOSUM [None]
  - MASTOCYTOSIS [None]
  - WHITE BLOOD CELL COUNT DECREASED [None]
  - POST VACCINATION SYNDROME [None]
  - ANAEMIA [None]
